FAERS Safety Report 13185600 (Version 2)
Quarter: 2017Q1

REPORT INFORMATION
  Report Type: Spontaneous
  Country: NL (occurrence: NL)
  Receive Date: 20170203
  Receipt Date: 20170217
  Transmission Date: 20170428
  Serious: Yes (Other)
  Sender: FDA-Public Use
  Company Number: NL-APOTEX-2017AP006223

PATIENT
  Age: 33 Year
  Sex: Female

DRUGS (1)
  1. PAROXETINE TABLET [Suspect]
     Active Substance: PAROXETINE
     Indication: ANXIETY DISORDER
     Dosage: 20 MG, QD
     Route: 065
     Dates: start: 2001

REACTIONS (3)
  - Premature separation of placenta [Unknown]
  - Foetal death [Unknown]
  - Exposure during pregnancy [Unknown]

NARRATIVE: CASE EVENT DATE: 2014
